FAERS Safety Report 16105829 (Version 1)
Quarter: 2019Q1

REPORT INFORMATION
  Report Type: Spontaneous
  Country: US (occurrence: US)
  Receive Date: 20190322
  Receipt Date: 20190322
  Transmission Date: 20190418
  Serious: Yes (Other)
  Sender: FDA-Public Use
  Company Number: US-NAPPMUNDI-USA-2019-0146574

PATIENT
  Sex: Male
  Weight: 108.84 kg

DRUGS (1)
  1. OXYCODONE HYDROCHLORIDE (SIMILAR TO NDA 22-272) [Suspect]
     Active Substance: OXYCODONE HYDROCHLORIDE
     Indication: PRODUCT USED FOR UNKNOWN INDICATION
     Dosage: 10 MG, UNK
     Route: 048
     Dates: end: 201812

REACTIONS (5)
  - Neuropathy peripheral [Unknown]
  - Unevaluable event [Unknown]
  - Malaise [Unknown]
  - Cervical vertebral fracture [Unknown]
  - Pain [Unknown]
